FAERS Safety Report 20110576 (Version 1)
Quarter: 2021Q4

REPORT INFORMATION
  Report Type: Spontaneous
  Country: US (occurrence: US)
  Receive Date: 20211124
  Receipt Date: 20211124
  Transmission Date: 20220304
  Serious: No
  Sender: FDA-Public Use
  Company Number: US-NOVOPROD-836954

PATIENT
  Age: 49 Year
  Sex: Male
  Weight: 137.8 kg

DRUGS (1)
  1. NOVOLOG [Suspect]
     Active Substance: INSULIN ASPART
     Indication: Type 2 diabetes mellitus
     Dosage: 16 IU, TID
     Route: 058
     Dates: start: 2017

REACTIONS (4)
  - Skin laceration [Recovered/Resolved]
  - Injection site erythema [Recovered/Resolved]
  - Needle issue [Recovered/Resolved]
  - Needle issue [Recovered/Resolved]

NARRATIVE: CASE EVENT DATE: 20210101
